FAERS Safety Report 21063883 (Version 2)
Quarter: 2022Q3

REPORT INFORMATION
  Report Type: Spontaneous
  Country: US (occurrence: US)
  Receive Date: 20220711
  Receipt Date: 20220910
  Transmission Date: 20221027
  Serious: No
  Sender: FDA-Public Use
  Company Number: US-009507513-2206USA008788

PATIENT
  Sex: Male

DRUGS (3)
  1. KEYTRUDA [Suspect]
     Active Substance: PEMBROLIZUMAB
     Dosage: STRENGTH 100MG/4 M
     Dates: start: 20220622
  2. INLYTA [Suspect]
     Active Substance: AXITINIB
     Indication: Renal cancer
     Dosage: STRENGHT: 5 MG, DOSE:1 TABLET (5 MG) (REPORTED AS  1 TABLET), BID
     Route: 048
     Dates: start: 20220614
  3. MELATONIN [Suspect]
     Active Substance: MELATONIN
     Route: 048

REACTIONS (7)
  - Rash [Unknown]
  - Palmar-plantar erythrodysaesthesia syndrome [Unknown]
  - Fatigue [Unknown]
  - Arthralgia [Unknown]
  - Dysphonia [Unknown]
  - Weight decreased [Unknown]
  - Fatigue [Not Recovered/Not Resolved]

NARRATIVE: CASE EVENT DATE: 20220101
